FAERS Safety Report 8608450-4 (Version None)
Quarter: 2012Q3

REPORT INFORMATION
  Report Type: 
  Country: None (occurrence: None)
  Receive Date: 20120821
  Receipt Date: 20120821
  Transmission Date: 20120928
  Serious: Yes (Hospitalization, Other)
  Sender: FDA-Public Use
  Company Number: US-PFIZER INC-2012170995

PATIENT
  Age: 56 Year
  Sex: Female

DRUGS (12)
  1. SULFAMETHOXAZOLE AND TRIMETHOPRIM [Suspect]
     Indication: PNEUMOCYSTIS JIROVECI PNEUMONIA
     Dosage: UNK
     Route: 042
  2. METRONIDAZOLE [Suspect]
     Indication: CLOSTRIDIUM TEST POSITIVE
     Dosage: 500 MG, 3X/DAY
     Route: 042
  3. PREDNISONE [Suspect]
     Indication: CHRONIC GRAFT VERSUS HOST DISEASE
     Dosage: 10 MG, DAILY
     Route: 065
  4. LEVOFLOXACIN [Suspect]
     Indication: ANTIBIOTIC PROPHYLAXIS
     Dosage: 250 MG, 1X/DAY
     Route: 065
  5. VANCOMYCIN HCL [Suspect]
     Indication: CLOSTRIDIUM TEST POSITIVE
     Dosage: 125 MG, 4X/DAY
     Route: 048
  6. SULFAMETHOXAZOLE TRIMETHOPRIM [Suspect]
     Indication: PROPHYLAXIS
     Dosage: ONE DOUBLE STRENGTH TABLET TWICE DAILY, EVERY MONDAY AND TUESDAY
     Route: 048
  7. ACICLOVIR [Concomitant]
     Indication: ANTIBIOTIC PROPHYLAXIS
     Dosage: 400 MG, 2X/DAY
  8. VANCOMYCIN HCL [Suspect]
     Dosage: 125 MG, 4X/DAY
     Route: 048
  9. LINEZOLID [Suspect]
     Indication: URINARY TRACT INFECTION ENTEROCOCCAL
     Dosage: 600 MG, 2X/DAY
     Route: 065
  10. SULFAMETHOXAZOLE TRIMETHOPRIM [Suspect]
     Dosage: UNK
     Route: 065
  11. PENTAMIDINE [Suspect]
     Indication: PNEUMOCYSTIS JIROVECI INFECTION
     Dosage: 1 IN 28 D (EVERY 28 DAYS)
     Route: 065
  12. FLUCONAZOLE [Concomitant]
     Indication: ANTIBIOTIC PROPHYLAXIS
     Dosage: 100 MG, 1X/DAY

REACTIONS (15)
  - HYPOXIA [None]
  - ABDOMINAL PAIN [None]
  - ABDOMINAL DISTENSION [None]
  - PNEUMOCYSTIS JIROVECI PNEUMONIA [None]
  - CONFUSIONAL STATE [None]
  - MENTAL STATUS CHANGES [None]
  - HYPERCAPNIA [None]
  - RESPIRATORY FAILURE [None]
  - CLOSTRIDIAL INFECTION [None]
  - TACHYCARDIA [None]
  - URINARY TRACT INFECTION ENTEROCOCCAL [None]
  - INTESTINAL DILATATION [None]
  - HYPOTENSION [None]
  - DIARRHOEA [None]
  - COLECTOMY TOTAL [None]
